FAERS Safety Report 6138632-5 (Version None)
Quarter: 2009Q1

REPORT INFORMATION
  Report Type: 
  Country: None (occurrence: None)
  Receive Date: 20090331
  Receipt Date: 20090318
  Transmission Date: 20090719
  Serious: Yes (Other)
  Sender: FDA-Public Use
  Company Number: US-ELI_LILLY_AND_COMPANY-US200903004577

PATIENT
  Sex: Female

DRUGS (2)
  1. ZYPREXA [Suspect]
     Dosage: 7.5 MG, EACH EVENING
  2. ZYPREXA [Suspect]
     Dosage: 2.5 MG, 2/D

REACTIONS (1)
  - GASTROSTOMY TUBE INSERTION [None]
